FAERS Safety Report 9019002 (Version 2)
Quarter: 2013Q1

REPORT INFORMATION
  Report Type: Spontaneous
  Country: GB (occurrence: GB)
  Receive Date: 20130118
  Receipt Date: 20130130
  Transmission Date: 20140127
  Serious: Yes (Hospitalization, Other)
  Sender: FDA-Public Use
  Company Number: GB-ABBOTT-13P-167-1036817-00

PATIENT
  Age: 50 Year
  Sex: Female

DRUGS (7)
  1. VALPROATE SEMISODIUM [Suspect]
     Indication: SCHIZOAFFECTIVE DISORDER
     Route: 048
  2. CLOZARIL [Suspect]
     Indication: SCHIZOPHRENIA
     Route: 048
     Dates: start: 20121011
  3. CLOZARIL [Suspect]
     Route: 048
     Dates: start: 20121013
  4. AMISULPRIDE [Concomitant]
     Indication: PSYCHOTIC DISORDER
  5. CLONAZEPAM [Concomitant]
     Indication: AGITATION
  6. PROPRANOLOL [Concomitant]
     Indication: PRODUCT USED FOR UNKNOWN INDICATION
  7. BUMETANIDE [Concomitant]
     Indication: PRODUCT USED FOR UNKNOWN INDICATION

REACTIONS (2)
  - Haemoglobin decreased [Not Recovered/Not Resolved]
  - Neutropenia [Recovering/Resolving]
